FAERS Safety Report 11751657 (Version 1)
Quarter: 2015Q4

REPORT INFORMATION
  Report Type: Spontaneous
  Country: US (occurrence: US)
  Receive Date: 20151118
  Receipt Date: 20151118
  Transmission Date: 20160304
  Serious: Yes (Hospitalization)
  Sender: FDA-Public Use
  Company Number: US-ASTRAZENECA-2015SF10065

PATIENT
  Sex: Female
  Weight: 44.9 kg

DRUGS (2)
  1. PULMICORT FLEXHALER [Suspect]
     Active Substance: BUDESONIDE
     Indication: BRONCHITIS CHRONIC
     Dosage: 180 MCG 2 PUFFS DAILY,
     Route: 055
     Dates: start: 201409
  2. PULMICORT FLEXHALER [Suspect]
     Active Substance: BUDESONIDE
     Indication: BRONCHITIS CHRONIC
     Dosage: 90 MCG 2 PUFFS DAILY
     Route: 055
     Dates: start: 201509

REACTIONS (5)
  - Product use issue [Unknown]
  - Off label use [Unknown]
  - Intentional product misuse [Unknown]
  - Gastrointestinal disorder [Unknown]
  - Product quality issue [Unknown]
